FAERS Safety Report 6543800-4 (Version None)
Quarter: 2010Q1

REPORT INFORMATION
  Report Type: 
  Country: None (occurrence: None)
  Receive Date: 20100120
  Receipt Date: 20100115
  Transmission Date: 20100710
  Serious: Yes (Death)
  Sender: FDA-Public Use
  Company Number: US-CELGENEUS-163-21880-09111737

PATIENT
  Sex: Male

DRUGS (3)
  1. REVLIMID [Suspect]
     Indication: MULTIPLE MYELOMA
     Route: 048
     Dates: start: 20091101, end: 20090101
  2. REVLIMID [Suspect]
     Dosage: 15-5MG
     Route: 048
     Dates: start: 20090701, end: 20090801
  3. REVLIMID [Suspect]
     Route: 048
     Dates: start: 20081201, end: 20090201

REACTIONS (2)
  - BLOOD COUNT ABNORMAL [None]
  - DEATH [None]
